FAERS Safety Report 9070485 (Version 1)
Quarter: 2013Q1

REPORT INFORMATION
  Report Type: Report from Study
  Country: US (occurrence: US)
  Receive Date: 20130129
  Receipt Date: 20130129
  Transmission Date: 20140127
  Serious: No
  Sender: FDA-Public Use
  Company Number: US-ABBOTT-12P-163-0927334-00

PATIENT
  Age: 27 Year
  Sex: Female

DRUGS (4)
  1. HUMIRA 40 MG/0.8 ML PEN [Suspect]
     Indication: COLITIS ULCERATIVE
     Dates: start: 20120331, end: 20120331
  2. HUMIRA 40 MG/0.8 ML PEN [Suspect]
     Dates: start: 20120415
  3. PREDNISONE [Concomitant]
     Indication: COLITIS ULCERATIVE
     Dosage: 20MG DAILY (BEING WEANED OFF)
  4. KARIVA [Concomitant]
     Indication: CONTRACEPTION

REACTIONS (2)
  - Injection site bruising [Not Recovered/Not Resolved]
  - Injection site erythema [Recovered/Resolved]
